FAERS Safety Report 6920107-4 (Version None)
Quarter: 2010Q3

REPORT INFORMATION
  Report Type: 
  Country: None (occurrence: None)
  Receive Date: 20100730
  Receipt Date: 20100318
  Transmission Date: 20110219
  Serious: Yes (Hospitalization)
  Sender: FDA-Public Use
  Company Number: OMPQ-PR-1002S-0095

PATIENT
  Age: 31 Year
  Sex: Female
  Weight: 83.9 kg

DRUGS (8)
  1. OMNIPAQUE 140 [Suspect]
     Indication: HEADACHE
     Dosage: 20 ML, SINGLE DOSE, I.T.
     Route: 037
     Dates: start: 20100115, end: 20100115
  2. OMNIPAQUE 140 [Suspect]
     Indication: INTRACRANIAL HYPOTENSION
     Dosage: 20 ML, SINGLE DOSE, I.T.
     Route: 037
     Dates: start: 20100115, end: 20100115
  3. OMNIPAQUE 140 [Suspect]
     Indication: TINNITUS
     Dosage: 20 ML, SINGLE DOSE, I.T.
     Route: 037
     Dates: start: 20100115, end: 20100115
  4. SYNTHROID [Concomitant]
  5. OMEPRAZOLE (PRILOSEC) [Concomitant]
  6. OXYCODONE [Concomitant]
  7. AMBIEN [Concomitant]
  8. IRON [Concomitant]

REACTIONS (1)
  - GRAND MAL CONVULSION [None]
